FAERS Safety Report 21213407 (Version 1)
Quarter: 2022Q3

REPORT INFORMATION
  Report Type: Spontaneous
  Country: None (occurrence: CN)
  Receive Date: 20220815
  Receipt Date: 20220815
  Transmission Date: 20221027
  Serious: Yes (Death)
  Sender: FDA-Public Use
  Company Number: CN-Jiangsu Hengrui Medicine Co., Ltd.-2131911

PATIENT
  Age: 43 Year
  Sex: Male

DRUGS (6)
  1. CYCLOPHOSPHAMIDE [Suspect]
     Active Substance: CYCLOPHOSPHAMIDE
     Indication: Surgical preconditioning
  2. METHOTREXATE [Suspect]
     Active Substance: METHOTREXATE
  3. CYCLOSPORINE [Suspect]
     Active Substance: CYCLOSPORINE
  4. BUSULFAN [Suspect]
     Active Substance: BUSULFAN
  5. MYCOPHENOLATE MOFETIL [Suspect]
     Active Substance: MYCOPHENOLATE MOFETIL
  6. PREDNISONE ACETATE [Suspect]
     Active Substance: PREDNISONE ACETATE

REACTIONS (2)
  - Squamous cell carcinoma of the hypopharynx [Fatal]
  - Product use in unapproved indication [Unknown]

NARRATIVE: CASE EVENT DATE: 20181225
